FAERS Safety Report 15556316 (Version 4)
Quarter: 2020Q3

REPORT INFORMATION
  Report Type: Report from Study
  Country: US (occurrence: US)
  Receive Date: 20181026
  Receipt Date: 20190607
  Transmission Date: 20201105
  Serious: Yes (Hospitalization)
  Sender: FDA-Public Use
  Company Number: PHHO2018US011388

PATIENT
  Age: 52 Year
  Sex: Female
  Weight: 61.6 kg

DRUGS (2)
  1. KISQALI FEMARA CO?PACK [Suspect]
     Active Substance: LETROZOLE\RIBOCICLIB
     Indication: OVARIAN CANCER METASTATIC
     Dosage: 400 MG, QW4
     Route: 042
     Dates: start: 20181002, end: 20181002
  2. PDR001 [Suspect]
     Active Substance: SPARTALIZUMAB
     Indication: OVARIAN CANCER METASTATIC
     Dosage: 400 MG, QW4
     Route: 042
     Dates: start: 20181002, end: 20181002

REACTIONS (5)
  - Thrombocytopenia [Unknown]
  - Small intestinal obstruction [Recovered/Resolved]
  - Febrile neutropenia [Recovered/Resolved]
  - Rash maculo-papular [Recovering/Resolving]
  - Neutropenia [Unknown]

NARRATIVE: CASE EVENT DATE: 20181016
